FAERS Safety Report 9081991 (Version 1)
Quarter: 2013Q1

REPORT INFORMATION
  Report Type: Report from Study
  Country: US (occurrence: US)
  Receive Date: 20130130
  Receipt Date: 20130130
  Transmission Date: 20140127
  Serious: No
  Sender: FDA-Public Use
  Company Number: US-ABBOTT-12P-163-0971829-00

PATIENT
  Age: 35 Year
  Sex: Female

DRUGS (8)
  1. HUMIRA 40 MG/0.8 ML PEN [Suspect]
     Indication: CROHN^S DISEASE
     Dates: start: 2011
  2. TRAZODONE [Concomitant]
     Indication: INSOMNIA
     Dosage: 100MG 1 AT BEDTIME
  3. LORTAB [Concomitant]
     Indication: PAIN
     Dosage: 5/500 1-2 EVERY 4-6 HOURS
  4. SOMA [Concomitant]
     Indication: MUSCLE RELAXANT THERAPY
     Dosage: 1/2 TABLET/DAY
  5. PROZAC [Concomitant]
     Indication: ANXIETY
     Dosage: 20MG 2/DAY
  6. PROZAC [Concomitant]
     Indication: DEPRESSION
  7. ALLEGRA [Concomitant]
     Indication: HYPERSENSITIVITY
     Dosage: OVER THE COUNTER 1/DAY
  8. VITAMINS [Concomitant]
     Indication: PRODUCT USED FOR UNKNOWN INDICATION
     Dosage: 1/DAY

REACTIONS (5)
  - Injection site mass [Recovered/Resolved]
  - Device malfunction [Recovered/Resolved]
  - Incorrect dose administered [Recovered/Resolved]
  - Injection site pain [Recovered/Resolved]
  - Injection site haemorrhage [Recovered/Resolved]
